FAERS Safety Report 9370056 (Version 1)
Quarter: 2013Q2

REPORT INFORMATION
  Report Type: Spontaneous
  Country: JP (occurrence: JP)
  Receive Date: 20130626
  Receipt Date: 20130626
  Transmission Date: 20140414
  Serious: Yes (Life-Threatening, Hospitalization)
  Sender: FDA-Public Use
  Company Number: JP-ROXANE LABORATORIES, INC.-2013-RO-01007RO

PATIENT
  Age: 76 Year
  Sex: Male

DRUGS (4)
  1. CLOPIDOGREL [Suspect]
     Indication: ANTIPLATELET THERAPY
  2. TICLOPIDINE [Suspect]
     Indication: ANTIPLATELET THERAPY
  3. ASPIRIN [Suspect]
     Indication: ANTIPLATELET THERAPY
  4. PACLITAXEL [Concomitant]
     Indication: CORONARY ARTERIAL STENT INSERTION

REACTIONS (2)
  - Procedural haemorrhage [Recovered/Resolved]
  - Cholecystitis acute [Unknown]
